FAERS Safety Report 5493982-0 (Version None)
Quarter: 2007Q4

REPORT INFORMATION
  Report Type: 
  Country: None (occurrence: None)
  Receive Date: 20071023
  Receipt Date: 20071012
  Transmission Date: 20080405
  Serious: Yes (Other)
  Sender: FDA-Public Use
  Company Number: CA-PFIZER INC-2007059887

PATIENT
  Sex: Male
  Weight: 81.2 kg

DRUGS (20)
  1. CHAMPIX [Suspect]
     Indication: EX-SMOKER
     Route: 048
     Dates: start: 20070603, end: 20070715
  2. MORPHINE [Interacting]
     Indication: NEPHROLITHIASIS
     Route: 042
  3. MORPHINE [Interacting]
     Indication: RENAL COLIC
  4. MORPHINE SULFATE [Concomitant]
     Route: 058
  5. PROMETHAZINE [Concomitant]
     Route: 030
  6. RAMIPRIL [Concomitant]
     Route: 048
  7. NADOLOL [Concomitant]
     Route: 048
  8. LIPITOR [Concomitant]
     Route: 048
  9. PROCHLORPERAZINE [Concomitant]
     Route: 048
  10. LOSEC [Concomitant]
     Route: 048
  11. DETROL LA [Concomitant]
     Route: 048
  12. COLACE [Concomitant]
     Route: 048
  13. FUROSEMIDE [Concomitant]
     Route: 048
  14. LASIX [Concomitant]
     Route: 042
  15. XATRAL [Concomitant]
     Route: 048
  16. APO-K [Concomitant]
     Route: 048
  17. LYRICA [Concomitant]
     Route: 048
  18. COMBIVENT [Concomitant]
  19. ACETYLSALICYLIC ACID SRT [Concomitant]
     Route: 048
  20. TETRACYCLINE [Concomitant]
     Route: 048
     Dates: start: 20060106

REACTIONS (5)
  - DRUG INEFFECTIVE [None]
  - DRUG INTERACTION [None]
  - NICOTINE DEPENDENCE [None]
  - PAIN [None]
  - SMOKER [None]
